FAERS Safety Report 6460842-8 (Version None)
Quarter: 2009Q4

REPORT INFORMATION
  Report Type: 
  Country: None (occurrence: None)
  Receive Date: 20091130
  Receipt Date: 20091120
  Transmission Date: 20100525
  Serious: Yes (Death)
  Sender: FDA-Public Use
  Company Number: US-PFIZER INC-2009279909

PATIENT
  Sex: Female

DRUGS (3)
  1. ACCUPRIL [Suspect]
  2. DETROL LA [Suspect]
  3. LIPITOR [Suspect]

REACTIONS (1)
  - DEATH [None]
